FAERS Safety Report 16593704 (Version 2)
Quarter: 2019Q3

REPORT INFORMATION
  Report Type: Spontaneous
  Country: US (occurrence: US)
  Receive Date: 20190718
  Receipt Date: 20190821
  Transmission Date: 20191004
  Serious: Yes (Congenital Anomaly, Other)
  Sender: FDA-Public Use
  Company Number: PHEH2019US029888

PATIENT
  Sex: Female

DRUGS (2)
  1. ZOFRAN [Suspect]
     Active Substance: ONDANSETRON HYDROCHLORIDE
     Indication: FOETAL EXPOSURE DURING PREGNANCY
     Route: 064
  2. ZOFRAN [Suspect]
     Active Substance: ONDANSETRON HYDROCHLORIDE
     Indication: FOETAL EXPOSURE DURING PREGNANCY
     Dosage: MOTHER DOSE: 08 MG, TID
     Route: 064

REACTIONS (16)
  - Epilepsy [Unknown]
  - Anxiety [Unknown]
  - Foetal growth restriction [Unknown]
  - Small for dates baby [Unknown]
  - Seizure [Unknown]
  - Anhedonia [Unknown]
  - Autism spectrum disorder [Unknown]
  - Hypotonia [Unknown]
  - Emotional distress [Unknown]
  - Low birth weight baby [Unknown]
  - Discordant twin [Unknown]
  - Injury [Not Recovered/Not Resolved]
  - Pain [Not Recovered/Not Resolved]
  - Congenital anomaly [Unknown]
  - Premature baby [Unknown]
  - Foetal exposure during pregnancy [Unknown]
